FAERS Safety Report 5858771-3 (Version None)
Quarter: 2008Q3

REPORT INFORMATION
  Report Type: 
  Country: None (occurrence: None)
  Receive Date: 20080825
  Receipt Date: 20080811
  Transmission Date: 20090109
  Serious: Yes (Hospitalization)
  Sender: FDA-Public Use
  Company Number: 032585

PATIENT
  Age: 76 Year
  Sex: Male

DRUGS (2)
  1. SULFAMETHOXAZOLE AND TRIMETHOPRIM (SULFAMETHOXAZOLE, TRIMETHOPRIM) TAB [Suspect]
     Indication: BACTERIAL INFECTION
     Dosage: 15 MG/KG/DAY OF TRIMETHOPRIM
  2. SULFAMETHOXAZOLE AND TRIMETHOPRIM (SULFAMETHOXAZOLE, TRIMETHOPRIM) TAB [Suspect]
     Indication: ENDOPHTHALMITIS
     Dosage: 15 MG/KG/DAY OF TRIMETHOPRIM

REACTIONS (1)
  - HYPOGLYCAEMIA [None]
